FAERS Safety Report 6589091-X (Version None)
Quarter: 2010Q1

REPORT INFORMATION
  Report Type: 
  Country: None (occurrence: None)
  Receive Date: 20100218
  Receipt Date: 20100208
  Transmission Date: 20100710
  Serious: Yes (Hospitalization, Other)
  Sender: FDA-Public Use
  Company Number: US-AMGEN-QUU391664

PATIENT
  Sex: Male

DRUGS (2)
  1. ENBREL [Suspect]
     Indication: RHEUMATOID ARTHRITIS
     Route: 058
  2. METHOTREXATE [Concomitant]
     Route: 048

REACTIONS (8)
  - CAROTID ARTERY OCCLUSION [None]
  - CONVULSION [None]
  - CYSTITIS [None]
  - HYPOTENSION [None]
  - MYOCARDIAL INFARCTION [None]
  - PROSTATOMEGALY [None]
  - URINARY RETENTION [None]
  - VENTRICULAR ARRHYTHMIA [None]
